FAERS Safety Report 9494959 (Version 4)
Quarter: 2013Q3

REPORT INFORMATION
  Report Type: Report from Study
  Country: AU (occurrence: AU)
  Receive Date: 20130903
  Receipt Date: 20130916
  Transmission Date: 20140515
  Serious: Yes (Hospitalization, Other)
  Sender: FDA-Public Use
  Company Number: PHHY2013AU093883

PATIENT
  Age: 43 Year
  Sex: Female
  Weight: 75 kg

DRUGS (28)
  1. CLOZARIL [Suspect]
     Indication: SCHIZOPHRENIA, PARANOID TYPE
     Dosage: 12.5 MG, AT MORNING
     Route: 048
     Dates: start: 20130809
  2. CLOZARIL [Suspect]
     Dosage: 25 MG, AT MORNING
     Route: 048
     Dates: start: 20130810
  3. CLOZARIL [Suspect]
     Dosage: 25 MG, AT MORNING
     Route: 048
     Dates: start: 20130811
  4. CLOZARIL [Suspect]
     Dosage: 50 MG, (25 MG IN MORNING AND 25 MG AT EVENING)
     Route: 048
     Dates: start: 20130812
  5. CLOZARIL [Suspect]
     Dosage: 50 MG, (25 MG IN MORNING AND 25 MG AT EVENING)
     Route: 048
     Dates: start: 20130813
  6. CLOZARIL [Suspect]
     Dosage: 75 MG, (25 MG IN MORNING AND 50 MG AT EVENING)
     Route: 048
     Dates: start: 20130814
  7. CLOZARIL [Suspect]
     Dosage: 100 MG, (25 MG IN MORNING AND 75 MG AT EVENING)
     Route: 048
     Dates: start: 20130815
  8. CLOZARIL [Suspect]
     Dosage: 125 MG, (25 MG IN MORNING AND 100 MG AT EVENING)
     Route: 048
     Dates: start: 20130816
  9. CLOZARIL [Suspect]
     Dosage: 150 MG, (50 MG IN MORNING AND 100 MG AT EVENING)
     Route: 048
     Dates: start: 20130817
  10. CLOZARIL [Suspect]
     Dosage: 150 MG, (50 MG IN MORNING AND 100 MG AT EVENING)
     Route: 048
     Dates: start: 20130818
  11. CLOZARIL [Suspect]
     Dosage: 175 MG, (50 MG IN MORNING AND 125 MG AT EVENING)
     Route: 048
     Dates: start: 20130819
  12. CLOZARIL [Suspect]
     Dosage: 175 MG, (50 MG IN MORNING AND 125 MG AT EVENING)
     Route: 048
     Dates: start: 20130820, end: 20130820
  13. CLOZARIL [Suspect]
     Dosage: 200 MG IN EVENING
     Route: 048
     Dates: start: 20130821
  14. CLOZARIL [Suspect]
     Dosage: 200 MG IN EVENING
     Route: 048
     Dates: start: 20130822
  15. CLOZARIL [Suspect]
     Dosage: 225 MG IN EVENING
     Route: 048
  16. CLOZARIL [Suspect]
     Dosage: 350 MG, DAILY
     Route: 048
     Dates: end: 20130820
  17. FLUPENTIXOL [Concomitant]
     Dosage: 80 MG
     Route: 030
     Dates: start: 20130807
  18. FLUPENTIXOL [Concomitant]
     Dosage: 80 MG
     Route: 030
     Dates: start: 20130822
  19. FLUPENTIXOL [Concomitant]
     Dosage: 80 MG FORTNIGHTLY
     Route: 030
     Dates: start: 20130827
  20. DIAZEPAM [Concomitant]
     Dosage: 10 MG, NOCTE
     Route: 048
     Dates: start: 20130817
  21. DIAZEPAM [Concomitant]
     Dosage: 10 MG, NOCTE
     Route: 048
     Dates: start: 20130818
  22. DIAZEPAM [Concomitant]
     Dosage: 10 MG, NOCTE
     Route: 048
     Dates: start: 20130819
  23. DIAZEPAM [Concomitant]
     Dosage: 10 MG, NOCTE
     Route: 048
     Dates: start: 20130820
  24. DIAZEPAM [Concomitant]
     Dosage: 10 MG, NOCTE
     Route: 048
     Dates: start: 20130821
  25. DIAZEPAM [Concomitant]
     Dosage: 10 MG, NOCTE
     Route: 048
     Dates: start: 20130822
  26. DIAZEPAM [Concomitant]
     Dosage: 10 MG, NOCTE
     Route: 048
     Dates: start: 20130827
  27. DIAZEPAM [Concomitant]
     Dosage: 10 MG, NOCTE
     Route: 048
     Dates: start: 20130828
  28. OLANZAPINE [Concomitant]
     Dosage: 10 MG, PM
     Dates: start: 20130827

REACTIONS (10)
  - Myocarditis [Unknown]
  - Troponin T increased [Unknown]
  - C-reactive protein increased [Not Recovered/Not Resolved]
  - Blood creatine phosphokinase increased [Recovered/Resolved]
  - Tachycardia [Recovered/Resolved]
  - Anxiety [Unknown]
  - Liver function test abnormal [Unknown]
  - Blood pressure increased [Recovered/Resolved]
  - Blood pressure decreased [Not Recovered/Not Resolved]
  - Eosinophil count increased [Not Recovered/Not Resolved]
